FAERS Safety Report 22123145 (Version 3)
Quarter: 2023Q2

REPORT INFORMATION
  Report Type: Spontaneous
  Country: PL (occurrence: PL)
  Receive Date: 20230322
  Receipt Date: 20230404
  Transmission Date: 20230722
  Serious: Yes (Other)
  Sender: FDA-Public Use
  Company Number: PL-ROCHE-3287377

PATIENT
  Age: 50 Year
  Sex: Male

DRUGS (3)
  1. TACROLIMUS [Suspect]
     Active Substance: TACROLIMUS
     Indication: Prophylaxis against transplant rejection
     Dosage: UNK, UNK, UNKNOWN FREQ
  2. PREDNISONE [Suspect]
     Active Substance: PREDNISONE
     Indication: Prophylaxis against transplant rejection
     Dosage: 5 MILLIGRAM UNKNOWN FREQ
  3. MYCOPHENOLATE MOFETIL [Suspect]
     Active Substance: MYCOPHENOLATE MOFETIL
     Indication: Prophylaxis against transplant rejection
     Dosage: 250 MG UNKNOWN FREQ. (500 MG)

REACTIONS (9)
  - Transplant rejection [Recovered/Resolved]
  - Pathogen resistance [Unknown]
  - Infection susceptibility increased [Unknown]
  - Skin bacterial infection [Unknown]
  - Urinary tract infection bacterial [Unknown]
  - Bacterial disease carrier [Unknown]
  - Lipid metabolism disorder [Unknown]
  - Hyperinsulinaemia [Unknown]
  - Off label use [Unknown]
